FAERS Safety Report 17781096 (Version 2)
Quarter: 2020Q3

REPORT INFORMATION
  Report Type: Spontaneous
  Country: US (occurrence: US)
  Receive Date: 20200514
  Receipt Date: 20200810
  Transmission Date: 20201102
  Serious: Yes (Other)
  Sender: FDA-Public Use
  Company Number: US-ABBVIE-20K-163-3402198-00

PATIENT
  Age: 56 Year
  Sex: Male
  Weight: 88.53 kg

DRUGS (3)
  1. PREDNISONE. [Concomitant]
     Active Substance: PREDNISONE
     Indication: ARTHRITIS
  2. HUMIRA [Suspect]
     Active Substance: ADALIMUMAB
     Indication: STILL^S DISEASE
     Route: 058
     Dates: start: 201910, end: 201912
  3. HUMIRA [Suspect]
     Active Substance: ADALIMUMAB
     Route: 058
     Dates: start: 20200410

REACTIONS (5)
  - Arthralgia [Not Recovered/Not Resolved]
  - Skeletal injury [Recovering/Resolving]
  - Off label use [Unknown]
  - Pain in extremity [Recovering/Resolving]
  - Needle issue [Unknown]

NARRATIVE: CASE EVENT DATE: 2019
